FAERS Safety Report 24339127 (Version 1)
Quarter: 2024Q3

REPORT INFORMATION
  Report Type: Spontaneous
  Country: US (occurrence: None)
  Receive Date: 20240919
  Receipt Date: 20240919
  Transmission Date: 20241016
  Serious: Yes (Hospitalization)
  Sender: Public
  Company Number: None

PATIENT
  Age: 55 Year
  Sex: Female
  Weight: 89.4 kg

DRUGS (2)
  1. CAPECITABINE [Suspect]
     Active Substance: CAPECITABINE
     Dates: end: 20240813
  2. OXALIPLATIN [Suspect]
     Active Substance: OXALIPLATIN
     Dates: end: 20240730

REACTIONS (5)
  - Nausea [None]
  - Enteritis [None]
  - Inflammatory bowel disease [None]
  - Hypokalaemia [None]
  - Abdominal pain [None]

NARRATIVE: CASE EVENT DATE: 20240818
